FAERS Safety Report 11228040 (Version 1)
Quarter: 2015Q2

REPORT INFORMATION
  Report Type: Spontaneous
  Country: GB (occurrence: GB)
  Receive Date: 20150630
  Receipt Date: 20150630
  Transmission Date: 20150821
  Serious: Yes (Hospitalization)
  Sender: FDA-Public Use
  Company Number: GB-TEVA-573316ACC

PATIENT
  Age: 57 Year
  Sex: Male

DRUGS (7)
  1. INDAPAMIDE. [Suspect]
     Active Substance: INDAPAMIDE
     Dosage: 2.5 MILLIGRAM DAILY; 2.5 MILLIGRAM, EACH MORNING
  2. IMIQUIMOD. [Concomitant]
     Active Substance: IMIQUIMOD
     Indication: HYPERKERATOSIS
     Dosage: AT NIGHT
  3. WARFARIN [Concomitant]
     Active Substance: WARFARIN
     Dosage: AS PER INR (6MG EACH DAY EXCEPT 7MG ON WEDNESDAYS)
  4. LANSOPRAZOLE. [Suspect]
     Active Substance: LANSOPRAZOLE
     Dosage: 15 MILLIGRAM DAILY; 15 MILLIGRAM, EACH MORNING; GASTRO-RESISTANT CAPSULE
  5. RAMIPRIL. [Concomitant]
     Active Substance: RAMIPRIL
     Dosage: 7.5 MILLIGRAM DAILY; 7.5 MILLIGRAM, EACH MORNING
  6. BISOPROLOL [Concomitant]
     Active Substance: BISOPROLOL
     Dosage: 5 MILLIGRAM DAILY; 5 MILLIGRAM, EACH MORNING
  7. ATORVASTATIN [Concomitant]
     Active Substance: ATORVASTATIN
     Dosage: 40 MILLIGRAM DAILY; 40 MILLIGRAM, AT NIGHT

REACTIONS (4)
  - Hypotension [Unknown]
  - Hyponatraemia [Recovering/Resolving]
  - Loss of consciousness [Recovering/Resolving]
  - Syncope [Recovered/Resolved]
